FAERS Safety Report 7887882-6 (Version None)
Quarter: 2011Q4

REPORT INFORMATION
  Report Type: 
  Country: None (occurrence: None)
  Receive Date: 20111103
  Receipt Date: 20111103
  Transmission Date: 20120403
  Serious: Yes (Other)
  Sender: FDA-Public Use
  Company Number: None

PATIENT
  Age: 54 Year
  Sex: Female
  Weight: 65.77 kg

DRUGS (1)
  1. SYNTHROID [Suspect]
     Indication: HYPOTHYROIDISM
     Dosage: 1
     Route: 051
     Dates: start: 20101028, end: 20111101

REACTIONS (7)
  - PALPITATIONS [None]
  - HEART RATE INCREASED [None]
  - PRODUCT FORMULATION ISSUE [None]
  - LETHARGY [None]
  - PRODUCT SUBSTITUTION ISSUE [None]
  - TREMOR [None]
  - HYPERHIDROSIS [None]
